FAERS Safety Report 9018612 (Version 1)
Quarter: 2013Q1

REPORT INFORMATION
  Report Type: Report from Study
  Country: US (occurrence: US)
  Receive Date: 20130118
  Receipt Date: 20130118
  Transmission Date: 20140127
  Serious: Yes (Other)
  Sender: FDA-Public Use
  Company Number: US-BAYER-2013-006076

PATIENT
  Sex: Female

DRUGS (3)
  1. INTERFERON BETA - 1B [Suspect]
     Indication: MULTIPLE SCLEROSIS
  2. INTERFERON BETA-1A [Suspect]
     Indication: MULTIPLE SCLEROSIS
  3. GLATIRAMER [Concomitant]
     Indication: MULTIPLE SCLEROSIS

REACTIONS (1)
  - Sarcoidosis [None]
